FAERS Safety Report 10028518 (Version 3)
Quarter: 2014Q2

REPORT INFORMATION
  Report Type: Report from Study
  Country: AU (occurrence: AU)
  Receive Date: 20140321
  Receipt Date: 20140425
  Transmission Date: 20141212
  Serious: Yes (Death)
  Sender: FDA-Public Use
  Company Number: AU-ASTRAZENECA-2013SE25616

PATIENT
  Age: 78 Year
  Sex: Male

DRUGS (3)
  1. ZOLADEX [Suspect]
     Route: 058
     Dates: start: 20100201
  2. PANADOL OSTEO [Concomitant]
     Indication: ARTHRITIS
  3. ENDONE [Concomitant]

REACTIONS (4)
  - Death [Fatal]
  - Asthenia [Not Recovered/Not Resolved]
  - Lethargy [Not Recovered/Not Resolved]
  - Arthralgia [Not Recovered/Not Resolved]
